FAERS Safety Report 6869601-5 (Version None)
Quarter: 2010Q3

REPORT INFORMATION
  Report Type: 
  Country: None (occurrence: None)
  Receive Date: 20100722
  Receipt Date: 20080808
  Transmission Date: 20110219
  Serious: No
  Sender: FDA-Public Use
  Company Number: US-PFIZER INC-2008067683

PATIENT
  Sex: Female
  Weight: 45.5 kg

DRUGS (8)
  1. CHANTIX [Suspect]
     Indication: SMOKING CESSATION THERAPY
     Route: 048
     Dates: start: 20080701
  2. ACETYLSALICYLIC ACID [Concomitant]
  3. FOLIC ACID [Concomitant]
  4. SIMVASTATIN [Concomitant]
  5. THEOPHYLLINE [Concomitant]
  6. BENADRYL [Concomitant]
     Indication: HYPERSENSITIVITY
  7. XANAX [Concomitant]
  8. CITRACAL + D [Concomitant]
     Indication: OSTEOPOROSIS

REACTIONS (4)
  - ABDOMINAL DISTENSION [None]
  - DIARRHOEA [None]
  - FLATULENCE [None]
  - NAUSEA [None]
